FAERS Safety Report 16139560 (Version 2)
Quarter: 2024Q3

REPORT INFORMATION
  Report Type: Spontaneous
  Country: DK (occurrence: DK)
  Receive Date: 20190401
  Receipt Date: 20240815
  Transmission Date: 20241017
  Serious: Yes (Death, Hospitalization, Other)
  Sender: ELI LILLY AND CO
  Company Number: None

PATIENT
  Age: 17 Year
  Sex: Male

DRUGS (12)
  1. GEMCITABINE HYDROCHLORIDE [Suspect]
     Active Substance: GEMCITABINE HYDROCHLORIDE
     Indication: Hepatocellular carcinoma
     Dosage: 1000 MG/M2, DAY 1 AND DAY 8
     Route: 065
  2. GEMCITABINE HYDROCHLORIDE [Suspect]
     Active Substance: GEMCITABINE HYDROCHLORIDE
     Dosage: 1000 MG/M2, DAY 1 AND DAY 8
     Route: 065
  3. SORAFENIB [Suspect]
     Active Substance: SORAFENIB
     Indication: Hepatocellular carcinoma
     Route: 048
  4. SORAFENIB [Suspect]
     Active Substance: SORAFENIB
     Dosage: 400 UNK
     Route: 048
  5. SORAFENIB [Suspect]
     Active Substance: SORAFENIB
     Dosage: 400 UNK
     Route: 048
  6. DOCETAXEL [Suspect]
     Active Substance: DOCETAXEL\DOCETAXEL ANHYDROUS
     Indication: Hepatocellular carcinoma
     Dosage: GIVEN AS FIVE SERIES OF COMBINATION THERAPY (GCT THEREPY) GIVEN ON DAY 1 OF A 3-WEEK CYCLE
     Route: 065
  7. TAXOL [Suspect]
     Active Substance: PACLITAXEL
     Indication: Hepatocellular carcinoma
     Dosage: 175 MG/M2 ON DAY 1 IN A 3-WEEK CYCLE
     Route: 065
  8. CISPLATIN [Suspect]
     Active Substance: CISPLATIN
     Indication: Hepatocellular carcinoma
     Dosage: GIVEN AS FIVE SERIES OF COMBINATION THERAPY (GCT THEREPY) GIVEN ON DAY 1 OF A 3-WEEK CYCLE
     Route: 065
  9. CISPLATIN [Suspect]
     Active Substance: CISPLATIN
     Dosage: GIVEN AS FIVE SERIES OF COMBINATION THERAPY (GCT THEREPY) GIVEN ON DAY 1 OF A 3-WEEK CYCLE
     Route: 065
  10. OXALIPLATIN [Suspect]
     Active Substance: OXALIPLATIN
     Indication: Hepatocellular carcinoma
     Dosage: 85 MG/M2, 2/M
     Route: 065
  11. PEGFILGRASTIM [Concomitant]
     Active Substance: PEGFILGRASTIM
     Indication: Hepatocellular carcinoma
     Dosage: ON DAY 2 OF EACH CYCLE
     Route: 058
  12. ERLOTINIB [Concomitant]
     Active Substance: ERLOTINIB
     Indication: Hepatocellular carcinoma
     Route: 048

REACTIONS (15)
  - Tinnitus [Recovered/Resolved]
  - General physical health deterioration [Unknown]
  - Paraesthesia [Recovered/Resolved]
  - Malignant neoplasm progression [Fatal]
  - Vomiting [Recovered/Resolved]
  - Pruritus [Unknown]
  - Neutropenia [Recovered/Resolved]
  - Diarrhoea [Recovered/Resolved]
  - Alopecia [Recovered/Resolved]
  - Rash [Unknown]
  - Anaemia [Recovered/Resolved]
  - Drug ineffective [Unknown]
  - Hepatic enzyme increased [Unknown]
  - Decreased appetite [Recovered/Resolved]
  - Neutropenia [Unknown]
